FAERS Safety Report 10145576 (Version 1)
Quarter: 2014Q2

REPORT INFORMATION
  Report Type: Spontaneous
  Country: GB (occurrence: GB)
  Receive Date: 20140501
  Receipt Date: 20140501
  Transmission Date: 20141212
  Serious: Yes (Hospitalization)
  Sender: FDA-Public Use
  Company Number: GB-RANBAXY-2014RR-80789

PATIENT
  Age: 51 Year
  Sex: Male

DRUGS (1)
  1. CO-AMOXICLAV [Suspect]
     Indication: WOUND INFECTION
     Dosage: 500/125MG
     Route: 048
     Dates: start: 20140324, end: 20140331

REACTIONS (1)
  - Rash [Not Recovered/Not Resolved]
